FAERS Safety Report 5744841-7 (Version None)
Quarter: 2008Q2

REPORT INFORMATION
  Report Type: 
  Country: None (occurrence: None)
  Receive Date: 20080520
  Receipt Date: 20080514
  Transmission Date: 20081010
  Serious: Yes (Other)
  Sender: FDA-Public Use
  Company Number: US-PFIZER INC-2008041217

PATIENT
  Sex: Male

DRUGS (1)
  1. CELEBREX [Suspect]

REACTIONS (5)
  - DIABETES MELLITUS [None]
  - GASTRIC DISORDER [None]
  - HAEMOPTYSIS [None]
  - HAEMORRHAGE [None]
  - RASH [None]
